FAERS Safety Report 8848974 (Version 1)
Quarter: 2012Q4

REPORT INFORMATION
  Report Type: Spontaneous
  Country: US (occurrence: None)
  Receive Date: 20121017
  Receipt Date: 20121017
  Transmission Date: 20130627
  Serious: No
  Sender: FDA-Public Use
  Company Number: None

PATIENT
  Sex: Male

DRUGS (1)
  1. REVLIMID [Suspect]
     Indication: MULTIPLE MYELOMA
     Dosage: 10 mg daily x21d/28d orally
     Route: 048
     Dates: start: 201208

REACTIONS (3)
  - Oedema peripheral [None]
  - Oedema peripheral [None]
  - Deep vein thrombosis [None]
